FAERS Safety Report 11520704 (Version 2)
Quarter: 2015Q4

REPORT INFORMATION
  Report Type: Spontaneous
  Country: IT (occurrence: IT)
  Receive Date: 20150918
  Receipt Date: 20151130
  Transmission Date: 20160304
  Serious: Yes (Death)
  Sender: FDA-Public Use
  Company Number: IT-BAYER-2015-421159

PATIENT
  Age: 68 Year
  Sex: Female
  Weight: 58 kg

DRUGS (1)
  1. NEXAVAR [Suspect]
     Active Substance: SORAFENIB
     Indication: HEPATOCELLULAR CARCINOMA
     Dosage: 800 MG, QD
     Route: 048
     Dates: start: 20150109, end: 20150119

REACTIONS (1)
  - Decreased appetite [Fatal]

NARRATIVE: CASE EVENT DATE: 20150119
